FAERS Safety Report 18442404 (Version 1)
Quarter: 2020Q4

REPORT INFORMATION
  Report Type: Spontaneous
  Country: ES (occurrence: ES)
  Receive Date: 20201029
  Receipt Date: 20201029
  Transmission Date: 20210114
  Serious: Yes (Other)
  Sender: FDA-Public Use
  Company Number: ES-009507513-2010ESP010605

PATIENT
  Age: 27 Year
  Sex: Female

DRUGS (4)
  1. IMPLANON NXT [Suspect]
     Active Substance: ETONOGESTREL
     Indication: CONTRACEPTION
     Dosage: 68 MICROGRAM, ONCE (1 TOTAL), 1 IMPLANT WITH APLLICATOR
     Route: 058
     Dates: start: 20190221, end: 20200914
  2. RIFALDIN [Interacting]
     Active Substance: RIFAMPIN
     Indication: HIDRADENITIS
     Dosage: 300 MILLIGRAM, Q12H, 24 CAPSULES
     Route: 048
     Dates: start: 20200301, end: 20200501
  3. DALACIN [Concomitant]
     Active Substance: CLINDAMYCIN
     Indication: HIDRADENITIS
     Dosage: 300 MILLIGRAM, Q12H, 24 CAPSULES
     Route: 048
     Dates: start: 20200301, end: 20200501
  4. EUTIROX [Concomitant]
     Active Substance: LEVOTHYROXINE SODIUM
     Indication: HYPOTHYROIDISM
     Dosage: 225 MILLIGRAM, QD, 100 TABLETS
     Route: 048

REACTIONS (2)
  - Therapeutic response decreased [Not Recovered/Not Resolved]
  - Pregnancy with contraceptive device [Not Recovered/Not Resolved]

NARRATIVE: CASE EVENT DATE: 202005
